FAERS Safety Report 23675455 (Version 1)
Quarter: 2024Q1

REPORT INFORMATION
  Report Type: Spontaneous
  Country: MK (occurrence: MK)
  Receive Date: 20240327
  Receipt Date: 20240327
  Transmission Date: 20240410
  Serious: Yes (Death, Hospitalization, Other)
  Sender: FDA-Public Use
  Company Number: MK-BRISTOL-MYERS SQUIBB COMPANY-2024-045468

PATIENT
  Age: 26 Year
  Sex: Female

DRUGS (1)
  1. OPDIVO [Suspect]
     Active Substance: NIVOLUMAB
     Indication: Hodgkin^s disease nodular sclerosis

REACTIONS (3)
  - Malignant neoplasm progression [Fatal]
  - Cachexia [Unknown]
  - Decreased appetite [Unknown]
